FAERS Safety Report 20939560 (Version 3)
Quarter: 2022Q2

REPORT INFORMATION
  Report Type: Other
  Country: JP (occurrence: JP)
  Receive Date: 20220609
  Receipt Date: 20220620
  Transmission Date: 20220721
  Serious: Yes (Other)
  Sender: FDA-Public Use
  Company Number: JP-CHUGAI-2022020989

PATIENT
  Age: 7 Decade
  Sex: Female

DRUGS (8)
  1. AVASTIN [Suspect]
     Active Substance: BEVACIZUMAB
     Indication: Colon cancer
     Route: 041
  2. CETUXIMAB [Suspect]
     Active Substance: CETUXIMAB
     Indication: Colon cancer
     Route: 041
  3. IRINOTECAN HYDROCHLORIDE [Suspect]
     Active Substance: IRINOTECAN HYDROCHLORIDE
     Indication: Colon cancer
     Route: 041
  4. XELODA [Concomitant]
     Active Substance: CAPECITABINE
     Indication: Colon cancer
     Route: 048
  5. OXALIPLATIN [Concomitant]
     Active Substance: OXALIPLATIN
     Indication: Colon cancer
     Route: 041
  6. FLUOROURACIL [Concomitant]
     Active Substance: FLUOROURACIL
     Indication: Colon cancer
     Route: 040
  7. FLUOROURACIL [Concomitant]
     Active Substance: FLUOROURACIL
     Route: 041
  8. LEVOLEUCOVORIN CALCIUM [Concomitant]
     Active Substance: LEVOLEUCOVORIN CALCIUM
     Indication: Colon cancer
     Route: 041

REACTIONS (2)
  - Paronychia [Unknown]
  - Cholinergic syndrome [Recovering/Resolving]
